FAERS Safety Report 9279142 (Version 1)
Quarter: 2013Q2

REPORT INFORMATION
  Report Type: Spontaneous
  Country: BR (occurrence: BR)
  Receive Date: 20130508
  Receipt Date: 20130508
  Transmission Date: 20140414
  Serious: Yes (Hospitalization, Other)
  Sender: FDA-Public Use
  Company Number: BR-ABBOTT-13P-020-1083476-00

PATIENT
  Age: 34 Year
  Sex: Female
  Weight: 55 kg

DRUGS (5)
  1. HUMIRA [Suspect]
     Indication: RHEUMATOID ARTHRITIS
     Route: 058
     Dates: start: 2008
  2. HUMIRA [Suspect]
     Route: 058
  3. HUMIRA [Suspect]
     Dates: end: 20130114
  4. UNKNOWN CORTICOID [Suspect]
     Indication: PAIN
  5. UNKNOWN ANTI-INFLAMMATORY DRUG [Suspect]
     Indication: PAIN

REACTIONS (13)
  - Rheumatoid arthritis [Recovered/Resolved]
  - Joint stiffness [Recovered/Resolved]
  - Joint effusion [Recovered/Resolved]
  - Musculoskeletal pain [Recovered/Resolved]
  - Arthralgia [Recovered/Resolved]
  - Rheumatic fever [Recovered/Resolved]
  - Swelling [Unknown]
  - Renal colic [Unknown]
  - Pain [Unknown]
  - Nephrolithiasis [Unknown]
  - Arthralgia [Unknown]
  - Joint swelling [Unknown]
  - Abasia [Recovered/Resolved]
